FAERS Safety Report 11559273 (Version 1)
Quarter: 2015Q3

REPORT INFORMATION
  Report Type: Spontaneous
  Country: US (occurrence: None)
  Receive Date: 20150925
  Receipt Date: 20150925
  Transmission Date: 20151125
  Serious: No
  Sender: FDA-Public Use
  Company Number: None

PATIENT
  Sex: Female
  Weight: 57.15 kg

DRUGS (1)
  1. SYNTHROID [Suspect]
     Active Substance: LEVOTHYROXINE SODIUM
     Indication: THYROID CANCER

REACTIONS (6)
  - Product substitution issue [None]
  - Exophthalmos [None]
  - Temperature intolerance [None]
  - Weight increased [None]
  - Drug ineffective [None]
  - Fatigue [None]
